FAERS Safety Report 25759444 (Version 2)
Quarter: 2025Q3

REPORT INFORMATION
  Report Type: Report from Study
  Country: US (occurrence: US)
  Receive Date: 20250904
  Receipt Date: 20250913
  Transmission Date: 20251021
  Serious: Yes (Hospitalization)
  Sender: ABBVIE
  Company Number: US-ABBVIE-6444136

PATIENT
  Age: 55 Year
  Sex: Female
  Weight: 97.522 kg

DRUGS (5)
  1. VYALEV [Suspect]
     Active Substance: FOSCARBIDOPA\FOSLEVODOPA
     Indication: Parkinson^s disease
     Route: 058
     Dates: start: 20250305, end: 20250821
  2. VYALEV [Suspect]
     Active Substance: FOSCARBIDOPA\FOSLEVODOPA
     Route: 058
     Dates: start: 20250826
  3. RIVASTIGMINE [Concomitant]
     Active Substance: RIVASTIGMINE
     Indication: Parkinson^s disease
  4. AMANTADINE [Concomitant]
     Active Substance: AMANTADINE
     Indication: Parkinson^s disease
  5. OPICAPONE [Concomitant]
     Active Substance: OPICAPONE
     Indication: Parkinson^s disease

REACTIONS (18)
  - Pyrexia [Recovered/Resolved]
  - Dyskinesia [Recovering/Resolving]
  - Neck pain [Recovering/Resolving]
  - Infusion site warmth [Recovering/Resolving]
  - Tremor [Recovering/Resolving]
  - Infusion site induration [Recovering/Resolving]
  - Infusion site warmth [Recovering/Resolving]
  - Infusion site infection [Recovering/Resolving]
  - Fatigue [Recovering/Resolving]
  - Infusion site erythema [Recovering/Resolving]
  - Foot deformity [Recovered/Resolved]
  - Pain [Recovered/Resolved]
  - Infusion site necrosis [Not Recovered/Not Resolved]
  - Infusion site infection [Not Recovered/Not Resolved]
  - Infusion site swelling [Recovering/Resolving]
  - Infusion site swelling [Recovering/Resolving]
  - Infusion site pain [Recovering/Resolving]
  - Infusion site erythema [Unknown]

NARRATIVE: CASE EVENT DATE: 20250801
